FAERS Safety Report 6818846-9 (Version None)
Quarter: 2010Q2

REPORT INFORMATION
  Report Type: 
  Country: None (occurrence: None)
  Receive Date: 20100630
  Receipt Date: 20100622
  Transmission Date: 20101027
  Serious: Yes (Death)
  Sender: FDA-Public Use
  Company Number: 2010SP035329

PATIENT
  Sex: Female
  Weight: 50 kg

DRUGS (2)
  1. SUGAMMADEX (SUGAMMADEX /00000000/) [Suspect]
     Indication: DRUG USE FOR UNKNOWN INDICATION
     Dosage: 200 MG
     Dates: start: 20100617
  2. ROCURONIUM BROMIDE [Suspect]
     Indication: INDUCTION OF ANAESTHESIA
     Dosage: 50 MG
     Dates: start: 20100617

REACTIONS (3)
  - CARDIO-RESPIRATORY ARREST [None]
  - COUGH [None]
  - ENDOTRACHEAL INTUBATION COMPLICATION [None]
